FAERS Safety Report 8413885-9 (Version None)
Quarter: 2012Q2

REPORT INFORMATION
  Report Type: 
  Country: None (occurrence: None)
  Receive Date: 20120605
  Receipt Date: 20120523
  Transmission Date: 20120825
  Serious: No
  Sender: FDA-Public Use
  Company Number: US-ASTRAZENECA-2011SE75904

PATIENT
  Age: 64 Year
  Sex: Female

DRUGS (2)
  1. NEXIUM [Suspect]
     Route: 048
  2. OMEPRAZOLE [Suspect]
     Route: 048

REACTIONS (5)
  - MUSCLE SPASMS [None]
  - DRUG EFFECT DECREASED [None]
  - OESOPHAGEAL OBSTRUCTION [None]
  - DRUG DOSE OMISSION [None]
  - DRUG INEFFECTIVE [None]
